FAERS Safety Report 18620673 (Version 2)
Quarter: 2021Q4

REPORT INFORMATION
  Report Type: Report from Study
  Country: BR (occurrence: BR)
  Receive Date: 20201215
  Receipt Date: 20211221
  Transmission Date: 20220303
  Serious: Yes (Hospitalization, Other)
  Sender: FDA-Public Use
  Company Number: BR-009507513-2012BRA006147

PATIENT
  Sex: Male
  Weight: 86 kg

DRUGS (4)
  1. JANUMET [Suspect]
     Active Substance: METFORMIN HYDROCHLORIDE\SITAGLIPTIN PHOSPHATE
     Indication: Type 1 diabetes mellitus
     Dosage: 1 TABLET - 50/1000MG - TWICE A DAY - AT LUNCH AND AT NIGHT
     Route: 048
     Dates: start: 2014, end: 20201208
  2. JANUMET [Suspect]
     Active Substance: METFORMIN HYDROCHLORIDE\SITAGLIPTIN PHOSPHATE
     Dosage: 1 TABLET - 50/1000MG - TWICE A DAY, BID
     Route: 048
     Dates: end: 202111
  3. JARDIANCE [Suspect]
     Active Substance: EMPAGLIFLOZIN
     Dosage: 25 MILLIGRAM, QD
  4. GLICLAZIDE [Concomitant]
     Active Substance: GLICLAZIDE
     Indication: Type 1 diabetes mellitus
     Dosage: 1 TABLET - 60 MG - IN THE MORNING

REACTIONS (5)
  - Varices oesophageal [Not Recovered/Not Resolved]
  - Hepatic cirrhosis [Not Recovered/Not Resolved]
  - Pain [Recovered/Resolved]
  - Product dose omission issue [Unknown]
  - Product use in unapproved indication [Unknown]

NARRATIVE: CASE EVENT DATE: 20140101
